FAERS Safety Report 7014533-5 (Version None)
Quarter: 2010Q3

REPORT INFORMATION
  Report Type: 
  Country: None (occurrence: None)
  Receive Date: 20100819
  Receipt Date: 20100803
  Transmission Date: 20110219
  Serious: Yes (Other)
  Sender: FDA-Public Use
  Company Number: PHHY2010MX51165

PATIENT
  Age: 64 Year
  Sex: Female

DRUGS (12)
  1. GALVUS MET [Suspect]
     Indication: DIABETES MELLITUS
     Dosage: 2  TABLET ( 50/500MG) PER DAY
     Dates: start: 20090901
  2. CARBAMAZEPINE [Suspect]
     Indication: HYPERSENSITIVITY
  3. AMARYL [Concomitant]
  4. DABEX [Concomitant]
  5. SINTRAL [Concomitant]
  6. CARET [Concomitant]
     Dosage: UNK
  7. DAFLON (DIOSMIN) [Concomitant]
  8. DEXTROPROPOXYPHENE [Concomitant]
     Dosage: UNK
  9. EVISTA [Concomitant]
  10. COMPLEX B FORTE [Concomitant]
  11. MULTIVITAMIN [Concomitant]
     Dosage: UNK
  12. RANISEN [Concomitant]

REACTIONS (2)
  - FALL [None]
  - JOINT INJURY [None]
